FAERS Safety Report 19996660 (Version 1)
Quarter: 2021Q4

REPORT INFORMATION
  Report Type: Spontaneous
  Country: GB (occurrence: GB)
  Receive Date: 20211025
  Receipt Date: 20211025
  Transmission Date: 20220303
  Serious: Yes (Life-Threatening, Other)
  Sender: FDA-Public Use
  Company Number: None

PATIENT
  Age: 47 Year
  Sex: Male
  Weight: 102 kg

DRUGS (4)
  1. METHYLPREDNISOLONE [Suspect]
     Active Substance: METHYLPREDNISOLONE
     Indication: Ill-defined disorder
     Dosage: 40 MG/ML
     Route: 051
     Dates: start: 20210808, end: 20210808
  2. LIDOCAINE [Suspect]
     Active Substance: LIDOCAINE
     Indication: Ill-defined disorder
     Dosage: 1 ML
     Route: 051
     Dates: start: 20211008, end: 20211008
  3. DYMISTA [Concomitant]
     Active Substance: AZELASTINE HYDROCHLORIDE\FLUTICASONE PROPIONATE
     Indication: Ill-defined disorder
  4. EUMOVATE [Concomitant]
     Active Substance: CLOBETASONE BUTYRATE
     Indication: Ill-defined disorder

REACTIONS (13)
  - Anaphylactic reaction [Recovering/Resolving]
  - Atrial fibrillation [Recovered/Resolved with Sequelae]
  - Arrhythmia [Unknown]
  - Near death experience [Unknown]
  - Presyncope [Unknown]
  - Dyspnoea [Recovered/Resolved]
  - Cough [Recovered/Resolved]
  - Visual impairment [Unknown]
  - Hyperhidrosis [Unknown]
  - Pyrexia [Unknown]
  - Tachycardia [Unknown]
  - Paraesthesia [Unknown]
  - Tremor [Unknown]

NARRATIVE: CASE EVENT DATE: 20210808
